FAERS Safety Report 8167378-7 (Version None)
Quarter: 2012Q1

REPORT INFORMATION
  Report Type: 
  Country: None (occurrence: None)
  Receive Date: 20120103
  Receipt Date: 20111010
  Transmission Date: 20120608
  Serious: No
  Sender: FDA-Public Use
  Company Number: AE-2011-002204

PATIENT
  Age: 67 Year
  Sex: Female
  Weight: 64.8644 kg

DRUGS (6)
  1. PEGASYS [Concomitant]
  2. LOSARTAN POTASSIUM [Concomitant]
  3. RIBAVIRIN [Concomitant]
  4. INCIVEK [Suspect]
     Dosage: 2250 MG (750 MG, 3 IN 1 D), ORAL
     Route: 048
     Dates: start: 20110920
  5. FISH OIL (FISH OIL) [Concomitant]
  6. CELEXA [Concomitant]

REACTIONS (5)
  - VERTIGO [None]
  - ASTHENIA [None]
  - ORAL HERPES [None]
  - CONSTIPATION [None]
  - NAUSEA [None]
